FAERS Safety Report 4382255-5 (Version None)
Quarter: 2004Q2

REPORT INFORMATION
  Report Type: 
  Country: None (occurrence: None)
  Receive Date: 20040616
  Receipt Date: 20040609
  Transmission Date: 20050107
  Serious: Yes (Death)
  Sender: FDA-Public Use
  Company Number: F04200400171

PATIENT
  Age: 66 Year
  Sex: Male

DRUGS (8)
  1. UROXATRAL [Suspect]
     Indication: BENIGN PROSTATIC HYPERPLASIA
     Dosage: 10 MG OD  ORAL
     Route: 048
     Dates: start: 20040126
  2. PREDNI H(PREDNISOLONE ACETATE) [Concomitant]
  3. AMARYL [Concomitant]
  4. LISINOPRIL [Concomitant]
  5. FUROSEMIDE [Concomitant]
  6. VERAPAMIL [Concomitant]
  7. VIANI FORTE (SALMETEROL+FLUTICASONE) [Concomitant]
  8. ALLOPURINOL [Concomitant]

REACTIONS (1)
  - ACUTE MYOCARDIAL INFARCTION [None]
